FAERS Safety Report 6930035-6 (Version None)
Quarter: 2010Q3

REPORT INFORMATION
  Report Type: 
  Country: None (occurrence: None)
  Receive Date: 20100818
  Receipt Date: 20100809
  Transmission Date: 20110219
  Serious: Yes (Disabling, Other)
  Sender: FDA-Public Use
  Company Number: JP-PFIZER INC-2010094271

PATIENT
  Age: 61 Year
  Sex: Male
  Weight: 51 kg

DRUGS (3)
  1. SUTENT [Suspect]
     Indication: RENAL CELL CARCINOMA
     Dosage: 12.5 MG, 4X/DAY
     Route: 048
     Dates: start: 20100630, end: 20100720
  2. LOXONIN [Concomitant]
     Dosage: 60 MG, 3X/DAY
     Route: 048
     Dates: start: 20100630
  3. GASTER [Concomitant]
     Dosage: 10 MG, 2X/DAY
     Route: 048
     Dates: start: 20100630

REACTIONS (2)
  - ARRHYTHMIA [None]
  - CEREBRAL INFARCTION [None]
